FAERS Safety Report 12871604 (Version 1)
Quarter: 2016Q4

REPORT INFORMATION
  Report Type: Spontaneous
  Country: US (occurrence: US)
  Receive Date: 20161021
  Receipt Date: 20161021
  Transmission Date: 20170207
  Serious: No
  Sender: FDA-Public Use
  Company Number: US-PURDUE-USA-2016-0129220

PATIENT
  Sex: Male
  Weight: 114.29 kg

DRUGS (1)
  1. OXYCONTIN [Suspect]
     Active Substance: OXYCODONE HYDROCHLORIDE
     Indication: ARTHRALGIA
     Dosage: 20 MG, Q12H
     Route: 048
     Dates: start: 20160223

REACTIONS (2)
  - Unevaluable event [Unknown]
  - Urticaria [Recovered/Resolved]
